FAERS Safety Report 20152483 (Version 1)
Quarter: 2021Q4

REPORT INFORMATION
  Report Type: Spontaneous
  Country: US (occurrence: US)
  Receive Date: 20211206
  Receipt Date: 20211206
  Transmission Date: 20220303
  Serious: No
  Sender: FDA-Public Use
  Company Number: US-UROGEN PHARMA LTD.-2021-UGN-000105

PATIENT

DRUGS (6)
  1. JELMYTO [Suspect]
     Active Substance: MITOMYCIN
     Indication: Product used for unknown indication
     Dosage: 1 MG (MILLIGRAM) (S) (INSTILLATION)
     Dates: start: 20210712, end: 20210712
  2. JELMYTO [Suspect]
     Active Substance: MITOMYCIN
     Dosage: 1 MG (MILLIGRAM) (S) (INSTILLATION)
     Dates: start: 20210719, end: 20210719
  3. JELMYTO [Suspect]
     Active Substance: MITOMYCIN
     Dosage: 1 MG (MILLIGRAM) (S) (INSTILLATION)
     Dates: start: 20210726, end: 20210726
  4. JELMYTO [Suspect]
     Active Substance: MITOMYCIN
     Dosage: 1 MG (MILLIGRAM) (S) (INSTILLATION)
     Dates: start: 20210802, end: 20210802
  5. JELMYTO [Suspect]
     Active Substance: MITOMYCIN
     Dosage: 1 MG (MILLIGRAM) (S) (INSTILLATION)
     Dates: start: 20210809, end: 20210809
  6. JELMYTO [Suspect]
     Active Substance: MITOMYCIN
     Dosage: 1 MG (MILLIGRAM) (S) (INSTILLATION)
     Dates: start: 20210816, end: 20210816

REACTIONS (1)
  - Malaise [Unknown]
